FAERS Safety Report 18338793 (Version 1)
Quarter: 2020Q4

REPORT INFORMATION
  Report Type: Spontaneous
  Country: US (occurrence: US)
  Receive Date: 20201002
  Receipt Date: 20201002
  Transmission Date: 20210113
  Serious: Yes (Death)
  Sender: FDA-Public Use
  Company Number: None

PATIENT
  Age: 60 Year
  Sex: Male
  Weight: 75 kg

DRUGS (20)
  1. ASCORBIC ACID 500MG PO TID [Concomitant]
     Dates: start: 20200716, end: 20200815
  2. PANTOPRAZOLE 40MG IV DAILY X2 DAYS THEN 40MG IV Q12HR [Concomitant]
     Dates: start: 20200818, end: 20200910
  3. HEPARIN [Concomitant]
     Active Substance: HEPARIN SODIUM
     Dates: start: 20200723, end: 20200906
  4. CHOLECALCIFEROL 2000 UNITS PO DAILY [Concomitant]
     Dates: start: 20200716, end: 20200815
  5. MELATONIN 6MG PO QHS [Concomitant]
     Dates: start: 20200716, end: 20200815
  6. MICAFUNGIN 100MG IV DAILY [Concomitant]
     Dates: start: 20200801, end: 20200814
  7. AMIODARONE IV X2 DAYS THEN 200MG BID FEED TUBE [Concomitant]
     Dates: start: 20200830, end: 20200921
  8. ENOXAPARIN 40MG SQ Q12HR [Concomitant]
     Dates: start: 20200713, end: 20200722
  9. MEROPENEM 1GM IV DAILY [Concomitant]
     Dates: start: 20200804, end: 20200921
  10. FAMOTIDINE 20MG PO Q12HR X6 DAYS THEN 20MG PO DAILY [Concomitant]
     Dates: start: 20200716, end: 20200817
  11. AZITHROMYCIN 500MG IV DAILY [Concomitant]
     Dates: start: 20200710, end: 20200711
  12. CEFEPIME 1 GM IV Q8HR X 7 DAYS THEN Q12HR [Concomitant]
     Dates: start: 20200717, end: 20200804
  13. DEXAMETHASONE 6MG IV ONCE DAILY [Concomitant]
     Dates: start: 20200714, end: 20200724
  14. ZINC 220MG PO DAILY [Concomitant]
     Dates: start: 20200716, end: 20200722
  15. THIAMINE 100MG PO BID [Concomitant]
     Dates: start: 20200716, end: 20200815
  16. DEXAMETHASONE 6MG IV ONCE DAILY [Concomitant]
     Dates: start: 20200919, end: 20200921
  17. VANCOMYCIN PER PROTOCOL [Concomitant]
     Dates: start: 20200731, end: 20200919
  18. REMDESIVIR. [Suspect]
     Active Substance: REMDESIVIR
     Indication: COVID-19 PNEUMONIA
     Route: 042
     Dates: start: 20200716, end: 20200718
  19. CEFTRIAXONE 1 GM IV ONCE DAILY [Concomitant]
     Dates: start: 20200710, end: 20200711
  20. INSULIN GLARGINE/LISPRO [Concomitant]
     Dates: start: 20200712, end: 20200921

REACTIONS (3)
  - Acute kidney injury [None]
  - Bacterial infection [None]
  - Acute respiratory distress syndrome [None]

NARRATIVE: CASE EVENT DATE: 20200921
